FAERS Safety Report 9137308 (Version 1)
Quarter: 2013Q1

REPORT INFORMATION
  Report Type: Spontaneous
  Country: US (occurrence: US)
  Receive Date: 20130304
  Receipt Date: 20130304
  Transmission Date: 20140127
  Serious: No
  Sender: FDA-Public Use
  Company Number: US-ABBOTT-12P-163-1028487-00

PATIENT
  Sex: Female

DRUGS (7)
  1. ANDROGEL [Suspect]
     Indication: BLOOD TESTOSTERONE ABNORMAL
     Dosage: 1.25 GRAMS EVERY 2 DAYS
     Dates: start: 2010
  2. SIMCOR [Concomitant]
     Indication: PRODUCT USED FOR UNKNOWN INDICATION
  3. MULTIVITAMIN [Concomitant]
     Indication: SUPPLEMENTATION THERAPY
  4. VITAMIN D [Concomitant]
     Indication: SUPPLEMENTATION THERAPY
  5. B COMPLEX [Concomitant]
     Indication: SUPPLEMENTATION THERAPY
  6. AMITRYPTYLLINE [Concomitant]
     Indication: HEADACHE
  7. AMITRYPTYLLINE [Concomitant]
     Indication: HYPERSENSITIVITY

REACTIONS (1)
  - Off label use [Unknown]
